FAERS Safety Report 10357773 (Version 2)
Quarter: 2014Q4

REPORT INFORMATION
  Report Type: Spontaneous
  Country: JP (occurrence: JP)
  Receive Date: 20140801
  Receipt Date: 20141114
  Transmission Date: 20150528
  Serious: Yes (Death)
  Sender: FDA-Public Use
  Company Number: PHHY2010JP095899

PATIENT
  Age: 74 Year
  Sex: Male

DRUGS (2)
  1. EXJADE [Suspect]
     Active Substance: DEFERASIROX
     Indication: MYELODYSPLASTIC SYNDROME
     Dosage: 500 MG, QD
     Route: 048
     Dates: start: 20091201, end: 201002
  2. EXJADE [Suspect]
     Active Substance: DEFERASIROX
     Dosage: UNK
     Route: 048
     Dates: start: 2010, end: 2010

REACTIONS (4)
  - Myelodysplastic syndrome [Fatal]
  - Rash [Recovered/Resolved]
  - Vomiting [Recovered/Resolved]
  - Condition aggravated [Fatal]

NARRATIVE: CASE EVENT DATE: 2010
